FAERS Safety Report 9134371 (Version 2)
Quarter: 2013Q2

REPORT INFORMATION
  Report Type: Spontaneous
  Country: US (occurrence: US)
  Receive Date: 20130304
  Receipt Date: 20130606
  Transmission Date: 20140414
  Serious: Yes (Other)
  Sender: FDA-Public Use
  Company Number: US-JNJFOC-20130214912

PATIENT
  Age: 47 Year
  Sex: Male
  Weight: 120 kg

DRUGS (18)
  1. STELARA [Suspect]
     Indication: PSORIATIC ARTHROPATHY
     Route: 058
     Dates: start: 2005, end: 2006
  2. STELARA [Suspect]
     Indication: PSORIATIC ARTHROPATHY
     Route: 058
     Dates: start: 20120612
  3. STELARA [Suspect]
     Indication: PSORIATIC ARTHROPATHY
     Dosage: 90 MG/INJECTION, 0, 1 MONTH, THEN EVERY 3 MONTHS THEREAFTER
     Route: 058
     Dates: start: 201003, end: 20111221
  4. STELARA [Suspect]
     Indication: PSORIASIS
     Dosage: 90 MG/INJECTION, 0, 1 MONTH, THEN EVERY 3 MONTHS THEREAFTER
     Route: 058
     Dates: start: 201003, end: 20111221
  5. STELARA [Suspect]
     Indication: PSORIASIS
     Route: 058
     Dates: start: 20120612
  6. STELARA [Suspect]
     Indication: PSORIASIS
     Route: 058
     Dates: start: 2005, end: 2006
  7. FLUTICASONE AND SALMETEROL [Concomitant]
     Dosage: PUFF
     Route: 055
  8. MORPHINE [Concomitant]
     Route: 048
  9. ESOMEPRAZOLE [Concomitant]
     Route: 048
  10. TAMSULOSIN [Concomitant]
     Route: 048
  11. ALBUTEROL [Concomitant]
     Dosage: 90MCG PER INHALER 1 TO 2 PUFFS EVERY 6 HOURS
     Route: 055
  12. AMLODIPINE [Concomitant]
     Route: 048
  13. LISINOPRIL [Concomitant]
     Route: 048
  14. SINGULAIR [Concomitant]
     Route: 048
  15. GLIPIZIDE [Concomitant]
     Route: 048
  16. GLUCOPHAGE [Concomitant]
     Route: 048
  17. VALSARTAN [Concomitant]
     Route: 048
  18. MAGNESIUM [Concomitant]
     Route: 048

REACTIONS (2)
  - Castleman^s disease [Not Recovered/Not Resolved]
  - Loss of consciousness [Not Recovered/Not Resolved]
